FAERS Safety Report 5108627-9 (Version None)
Quarter: 2006Q3

REPORT INFORMATION
  Report Type: 
  Country: None (occurrence: None)
  Receive Date: 20060915
  Receipt Date: 20060901
  Transmission Date: 20061208
  Serious: Yes (Life-Threatening, Hospitalization, Other)
  Sender: FDA-Public Use
  Company Number: 2006AL002639

PATIENT
  Age: 40 Year
  Sex: Male

DRUGS (3)
  1. MIRTAZAPINE [Suspect]
     Indication: MAJOR DEPRESSION
     Dosage: 45 MG; PO
     Route: 048
     Dates: start: 20050101
  2. RISPERIDONE [Concomitant]
  3. BIPERIDEN HYDROCHLORIDE TAB [Concomitant]

REACTIONS (2)
  - PULMONARY EMBOLISM [None]
  - RHABDOMYOLYSIS [None]
